FAERS Safety Report 25074547 (Version 1)
Quarter: 2025Q1

REPORT INFORMATION
  Report Type: Spontaneous
  Country: US (occurrence: US)
  Receive Date: 20250313
  Receipt Date: 20250313
  Transmission Date: 20250409
  Serious: Yes (Other)
  Sender: JOHNSON AND JOHNSON
  Company Number: US-JNJFOC-20250308344

PATIENT

DRUGS (1)
  1. STELARA [Suspect]
     Active Substance: USTEKINUMAB
     Indication: Product used for unknown indication

REACTIONS (7)
  - Intestinal haemorrhage [Unknown]
  - Abdominal pain lower [Unknown]
  - Injury [Unknown]
  - Burning sensation [Unknown]
  - Faeces discoloured [Unknown]
  - Nervousness [Unknown]
  - Muscle tightness [Unknown]
